FAERS Safety Report 12340556 (Version 1)
Quarter: 2016Q2

REPORT INFORMATION
  Report Type: Spontaneous
  Country: US (occurrence: None)
  Receive Date: 20160505
  Receipt Date: 20160505
  Transmission Date: 20160815
  Serious: Yes (Disabling, Other)
  Sender: FDA-Public Use
  Company Number: None

PATIENT
  Age: 53 Year
  Sex: Female
  Weight: 106.6 kg

DRUGS (14)
  1. RITALIN [Concomitant]
     Active Substance: METHYLPHENIDATE HYDROCHLORIDE
  2. ALEVE [Concomitant]
     Active Substance: NAPROXEN SODIUM
  3. CYMBALTA [Concomitant]
     Active Substance: DULOXETINE HYDROCHLORIDE
  4. GEODON [Concomitant]
     Active Substance: ZIPRASIDONE HYDROCHLORIDE\ZIPRASIDONE MESYLATE
  5. KLONOPIN [Concomitant]
     Active Substance: CLONAZEPAM
  6. ARIPIPRAZOLE. [Suspect]
     Active Substance: ARIPIPRAZOLE
     Indication: BIPOLAR DISORDER
     Dosage: 100 TABLET(S) IN THE MORNING TAKEN BY MOUTH
     Route: 048
     Dates: start: 20160101, end: 20160503
  7. NEURONTIN [Concomitant]
     Active Substance: GABAPENTIN
  8. B-12 INJECTIONS [Concomitant]
  9. TIZANINDINE [Concomitant]
  10. FERROUS SULFATE. [Concomitant]
     Active Substance: FERROUS SULFATE
  11. TOPAMAX [Concomitant]
     Active Substance: TOPIRAMATE
  12. IBUPROFEN. [Concomitant]
     Active Substance: IBUPROFEN
  13. TEMAZEPAM. [Concomitant]
     Active Substance: TEMAZEPAM
  14. FROVA [Concomitant]
     Active Substance: FROVATRIPTAN SUCCINATE

REACTIONS (2)
  - Weight increased [None]
  - Compulsive shopping [None]

NARRATIVE: CASE EVENT DATE: 20160420
